FAERS Safety Report 8501012-9 (Version None)
Quarter: 2012Q3

REPORT INFORMATION
  Report Type: 
  Country: None (occurrence: None)
  Receive Date: 20120710
  Receipt Date: 20120702
  Transmission Date: 20120928
  Serious: Yes (Death)
  Sender: FDA-Public Use
  Company Number: US-FRI-1000036813

PATIENT
  Age: 28 Year
  Sex: Male

DRUGS (3)
  1. VIIBRYD [Suspect]
     Indication: DEPRESSION
     Dosage: 10 MG
     Route: 048
     Dates: start: 20120101, end: 20120101
  2. NALTREXONE HYDROCHLORIDE [Concomitant]
     Indication: ALCOHOLISM
     Dates: end: 20120601
  3. VIIBRYD [Suspect]
     Route: 048
     Dates: end: 20120601

REACTIONS (1)
  - COMPLETED SUICIDE [None]
